FAERS Safety Report 5123387-3 (Version None)
Quarter: 2006Q4

REPORT INFORMATION
  Report Type: 
  Country: None (occurrence: None)
  Receive Date: 20061005
  Receipt Date: 20060922
  Transmission Date: 20070319
  Serious: Yes (Life-Threatening)
  Sender: FDA-Public Use
  Company Number: 230485

PATIENT
  Age: 52 Year
  Sex: Male

DRUGS (3)
  1. HERCEPTIN [Suspect]
     Indication: GASTRIC CANCER
     Dosage: 8 MG/KG, Q3W, INTRAVENOUS
     Route: 042
     Dates: start: 20060919
  2. CAPECITABINE (CAPECITABINE) [Suspect]
     Indication: GASTRIC CANCER
     Dosage: 1000 MG/M2
  3. CISPLATIN [Suspect]
     Indication: GASTRIC CANCER
     Dosage: 80 MG/M2, Q3W
     Dates: start: 20060919

REACTIONS (2)
  - GASTRIC PERFORATION [None]
  - PNEUMOPERITONEUM [None]
